FAERS Safety Report 4554905-1 (Version None)
Quarter: 2004Q4

REPORT INFORMATION
  Report Type: 
  Country: None (occurrence: None)
  Receive Date: 20041222
  Receipt Date: 20041012
  Transmission Date: 20050328
  Serious: Yes (Other)
  Sender: FDA-Public Use
  Company Number: 209626

PATIENT

DRUGS (3)
  1. AVASTIN [Suspect]
  2. CHEMOTHERAPY (ANTINEOPLASTIC AGENT NOS) [Concomitant]
  3. COUMADIN [Concomitant]

REACTIONS (1)
  - GASTROINTESTINAL HAEMORRHAGE [None]
